FAERS Safety Report 11965543 (Version 1)
Quarter: 2016Q1

REPORT INFORMATION
  Report Type: Spontaneous
  Country: US (occurrence: None)
  Receive Date: 20160125
  Receipt Date: 20160125
  Transmission Date: 20160526
  Serious: Yes (Other)
  Sender: FDA-Public Use
  Company Number: None

PATIENT
  Age: 54 Year
  Sex: Female
  Weight: 75.75 kg

DRUGS (14)
  1. TEMAZEPAM. [Concomitant]
     Active Substance: TEMAZEPAM
  2. VERAPAMIL ER [Concomitant]
     Active Substance: VERAPAMIL HYDROCHLORIDE
  3. VITAMIN B2 [Concomitant]
     Active Substance: RIBOFLAVIN
  4. GABAPENTIN. [Concomitant]
     Active Substance: GABAPENTIN
  5. PRISTIQ EXTENDED RELEASE [Concomitant]
     Active Substance: DESVENLAFAXINE SUCCINATE
  6. ARMOUR THYROID [Concomitant]
     Active Substance: THYROID, PORCINE
  7. LATUDA [Suspect]
     Active Substance: LURASIDONE HYDROCHLORIDE
     Indication: MAJOR DEPRESSION
     Dosage: 1 PILL
     Route: 048
     Dates: start: 20151124, end: 20160123
  8. NAPROXEN. [Concomitant]
     Active Substance: NAPROXEN
  9. PROGESTERONE. [Concomitant]
     Active Substance: PROGESTERONE
  10. SUNBEAM RENUE HEAT TENSION THERAPY [Concomitant]
  11. DHEA [Concomitant]
     Active Substance: PRASTERONE
  12. VITAMIN B12 [Concomitant]
     Active Substance: CYANOCOBALAMIN
  13. ASPIRIN. [Concomitant]
     Active Substance: ASPIRIN
  14. BUPROPRION HCL SL [Concomitant]

REACTIONS (2)
  - Muscle rigidity [None]
  - Migraine [None]

NARRATIVE: CASE EVENT DATE: 20160101
